FAERS Safety Report 5358166-5 (Version None)
Quarter: 2007Q2

REPORT INFORMATION
  Report Type: 
  Country: None (occurrence: None)
  Receive Date: 20070530
  Receipt Date: 20061019
  Transmission Date: 20071010
  Serious: Yes (Hospitalization)
  Sender: FDA-Public Use
  Company Number: US200605005793

PATIENT
  Age: 48 Year
  Sex: Male
  Weight: 142.9 kg

DRUGS (4)
  1. ZYPREXA [Suspect]
     Indication: DEPRESSION
     Dosage: 10 MG
     Dates: start: 19980101, end: 20040101
  2. SERTRALINE [Concomitant]
  3. METOPROLOL TARTRATE [Concomitant]
  4. ARIPIPRAZOLE [Concomitant]

REACTIONS (3)
  - DIABETES MELLITUS [None]
  - GLYCOSURIA [None]
  - HYPERTENSION [None]
